FAERS Safety Report 7681794-9 (Version None)
Quarter: 2011Q3

REPORT INFORMATION
  Report Type: 
  Country: None (occurrence: None)
  Receive Date: 20110812
  Receipt Date: 20110808
  Transmission Date: 20111222
  Serious: Yes (Life-Threatening, Hospitalization, Other)
  Sender: FDA-Public Use
  Company Number: AT-ASTRAZENECA-2011SE46825

PATIENT
  Sex: Male
  Weight: 72 kg

DRUGS (1)
  1. BRILIQUE [Suspect]
     Route: 048
     Dates: start: 20110728, end: 20110730

REACTIONS (2)
  - OPERATIVE HAEMORRHAGE [None]
  - MULTI-ORGAN FAILURE [None]
